FAERS Safety Report 6012378-6 (Version None)
Quarter: 2008Q4

REPORT INFORMATION
  Report Type: 
  Country: None (occurrence: None)
  Receive Date: 20081218
  Receipt Date: 20080924
  Transmission Date: 20090506
  Serious: Yes (Other)
  Sender: FDA-Public Use
  Company Number: US-ASTRAZENECA-2008UW20111

PATIENT
  Age: 14 Year
  Sex: Female
  Weight: 40.8 kg

DRUGS (4)
  1. SYMBICORT [Suspect]
     Indication: CYSTIC FIBROSIS
     Route: 055
     Dates: start: 20070101, end: 20070101
  2. PULMOZYME [Concomitant]
  3. TOBRAMYCIN [Concomitant]
  4. ALBUTEROL [Concomitant]

REACTIONS (1)
  - BRONCHOSPASM [None]
